FAERS Safety Report 9481570 (Version 2)
Quarter: 2013Q3

REPORT INFORMATION
  Report Type: Spontaneous
  Country: US (occurrence: US)
  Receive Date: 20130828
  Receipt Date: 20130828
  Transmission Date: 20140515
  Serious: Yes (Hospitalization)
  Sender: FDA-Public Use
  Company Number: US-AMGEN-KDL175145

PATIENT
  Age: 62 Year
  Sex: Female

DRUGS (2)
  1. ENBREL [Suspect]
     Indication: PSORIATIC ARTHROPATHY
     Dosage: 50 MG, QWK
     Route: 058
     Dates: start: 20020401
  2. ENBREL [Suspect]
     Indication: PSORIASIS

REACTIONS (8)
  - Suicide attempt [Unknown]
  - Emotional disorder [Not Recovered/Not Resolved]
  - Mental disorder [Not Recovered/Not Resolved]
  - Smoking cessation therapy [Unknown]
  - Joint swelling [Not Recovered/Not Resolved]
  - Knee deformity [Not Recovered/Not Resolved]
  - Injection site pain [Recovered/Resolved]
  - Skin fissures [Unknown]
